FAERS Safety Report 23545222 (Version 2)
Quarter: 2024Q1

REPORT INFORMATION
  Report Type: Report from Study
  Country: DE (occurrence: DE)
  Receive Date: 20240220
  Receipt Date: 20240318
  Transmission Date: 20240410
  Serious: Yes (Hospitalization)
  Sender: FDA-Public Use
  Company Number: DE-UCBSA-2024004465

PATIENT
  Age: 49 Year
  Sex: Male
  Weight: 103 kg

DRUGS (5)
  1. BIMEKIZUMAB [Suspect]
     Active Substance: BIMEKIZUMAB
     Indication: Product used for unknown indication
     Dosage: UNK
  2. CANDESARTAN [Concomitant]
     Active Substance: CANDESARTAN
     Indication: Hypertension
     Dosage: 8 MILLIGRAM, ONCE DAILY (QD)
     Route: 048
     Dates: start: 201910
  3. ST. JOHN^S WORT [Concomitant]
     Active Substance: ST. JOHN^S WORT
     Indication: Stress
     Dosage: 900 MILLIGRAM, ONCE DAILY (QD)
     Route: 048
     Dates: start: 202309
  4. CELEBREX [Concomitant]
     Active Substance: CELECOXIB
     Indication: Arthralgia
     Dosage: 100 MILLIGRAM, AS NEEDED (PRN)
     Route: 048
     Dates: start: 202309
  5. NOVALGIN (METAMIZOLE SODIUM) [Concomitant]
     Active Substance: METAMIZOLE SODIUM
     Indication: Arthralgia
     Dosage: 500 MILLIGRAM, AS NEEDED (PRN)
     Route: 048
     Dates: start: 202309

REACTIONS (5)
  - Chronic inflammatory demyelinating polyradiculoneuropathy [Recovering/Resolving]
  - Fatigue [Recovered/Resolved]
  - Paraesthesia [Recovered/Resolved]
  - Nasopharyngitis [Unknown]
  - Gastrointestinal infection [Recovered/Resolved]

NARRATIVE: CASE EVENT DATE: 20231010
